FAERS Safety Report 21450727 (Version 3)
Quarter: 2022Q4

REPORT INFORMATION
  Report Type: Report from Study
  Country: MX (occurrence: MX)
  Receive Date: 20221013
  Receipt Date: 20221031
  Transmission Date: 20230112
  Serious: Yes (Other)
  Sender: FDA-Public Use
  Company Number: MX-NOVARTISPH-NVSC2022MX230723

PATIENT
  Sex: Female
  Weight: 64 kg

DRUGS (2)
  1. DIOVAN [Suspect]
     Active Substance: VALSARTAN
     Indication: Hypertension
     Dosage: 1 DOSAGE FORM, QD (160 MG) (STARTED ABOUT 8 YEARS AGO)
     Route: 048
     Dates: start: 2014
  2. DIOSMIN [Concomitant]
     Active Substance: DIOSMIN
     Indication: Collateral circulation
     Dosage: 1 DOSAGE FORM, EVERY 24 HOURS
     Route: 048

REACTIONS (15)
  - Haematochezia [Recovered/Resolved]
  - Diverticulum [Recovered/Resolved]
  - Diverticulum [Recovered/Resolved]
  - Discomfort [Recovering/Resolving]
  - Abdominal discomfort [Recovering/Resolving]
  - Pain [Recovered/Resolved]
  - Anxiety [Unknown]
  - Faeces discoloured [Unknown]
  - Fall [Unknown]
  - Musculoskeletal discomfort [Recovering/Resolving]
  - Limb injury [Recovering/Resolving]
  - Diarrhoea [Recovered/Resolved]
  - Glucose tolerance impaired [Unknown]
  - Obesity [Recovered/Resolved]
  - Abdominal pain [Unknown]

NARRATIVE: CASE EVENT DATE: 20160101
